FAERS Safety Report 6880762-4 (Version None)
Quarter: 2010Q3

REPORT INFORMATION
  Report Type: 
  Country: None (occurrence: None)
  Receive Date: 20100728
  Receipt Date: 20100723
  Transmission Date: 20110219
  Serious: Yes (Death, Hospitalization, Other)
  Sender: FDA-Public Use
  Company Number: JP-BAYER-200913213BYL

PATIENT
  Age: 82 Year
  Sex: Female

DRUGS (5)
  1. NEXAVAR [Suspect]
     Indication: HEPATIC NEOPLASM MALIGNANT
     Dosage: TOTAL DAILY DOSE: 800 MG  UNIT DOSE: 200 MG
     Route: 048
     Dates: start: 20090729, end: 20090826
  2. UREPEARL [Concomitant]
     Indication: PALMAR-PLANTAR ERYTHRODYSAESTHESIA SYNDROME
     Route: 062
     Dates: start: 20090814, end: 20090826
  3. LASIX [Concomitant]
     Route: 065
     Dates: start: 20090825
  4. ALBUMIN (HUMAN) [Concomitant]
     Route: 065
     Dates: start: 20090825
  5. ANTIPYRETICS, ANALGESICS AND ANTI-INFLAMMATORY AGENTS NOS [Concomitant]
     Route: 065
     Dates: start: 20090825

REACTIONS (5)
  - CARDIAC FAILURE CONGESTIVE [None]
  - DIARRHOEA [None]
  - HEPATIC FUNCTION ABNORMAL [None]
  - HEPATIC NEOPLASM MALIGNANT [None]
  - PALMAR-PLANTAR ERYTHRODYSAESTHESIA SYNDROME [None]
